FAERS Safety Report 6518038-7 (Version None)
Quarter: 2009Q4

REPORT INFORMATION
  Report Type: 
  Country: None (occurrence: None)
  Receive Date: 20091218
  Receipt Date: 20091207
  Transmission Date: 20100525
  Serious: Yes (Death, Hospitalization)
  Sender: FDA-Public Use
  Company Number: CIP09003474

PATIENT
  Age: 86 Year
  Sex: Female

DRUGS (7)
  1. FURADANTIN [Suspect]
     Indication: URINARY TRACT INFECTION
     Dosage: 50 MG, ORAL
     Route: 048
     Dates: start: 20091007, end: 20091015
  2. PREVISCAN (FLUINDIONE) TABLET, 20MG [Suspect]
     Indication: THROMBOSIS PROPHYLAXIS
     Dosage: ACCORDING TO INR, ORAL
     Route: 048
     Dates: start: 20071001, end: 20091021
  3. EFFEXOR /01233801/ (VENLAFAXINE) [Concomitant]
  4. MONOCRIXO (TRAMADOL HYDROCHLORIDE) [Concomitant]
  5. COVERSYL /0079701/ (PERINDOPRIL) [Concomitant]
  6. ATARAX [Concomitant]
  7. TETRAZEPAM (TETRAZEPAM) [Concomitant]

REACTIONS (11)
  - AGITATION [None]
  - APHASIA [None]
  - CEREBRAL HAEMATOMA [None]
  - CONSTIPATION [None]
  - DRUG INTERACTION [None]
  - DYSPNOEA [None]
  - GENERAL PHYSICAL HEALTH DETERIORATION [None]
  - INTERNATIONAL NORMALISED RATIO INCREASED [None]
  - LOSS OF CONSCIOUSNESS [None]
  - RESPIRATORY DISTRESS [None]
  - URINARY RETENTION [None]
